FAERS Safety Report 11196331 (Version 1)
Quarter: 2015Q2

REPORT INFORMATION
  Report Type: Spontaneous
  Country: TW (occurrence: TW)
  Receive Date: 20150617
  Receipt Date: 20150617
  Transmission Date: 20150821
  Serious: Yes (Life-Threatening, Hospitalization)
  Sender: FDA-Public Use
  Company Number: TW-BAYER-2015-353364

PATIENT
  Age: 79 Year
  Sex: Male

DRUGS (6)
  1. ACETYLCYSTEINE. [Concomitant]
     Active Substance: ACETYLCYSTEINE
  2. DIHYDROERGOTOXINE [Concomitant]
  3. ULTRAVIST [Suspect]
     Active Substance: IOPROMIDE
  4. SENNOSIDE [Concomitant]
     Active Substance: SENNOSIDES
  5. ASPIRIN. [Concomitant]
     Active Substance: ASPIRIN
  6. PITAVASTATIN [Concomitant]
     Active Substance: PITAVASTATIN

REACTIONS (4)
  - Hepatitis fulminant [None]
  - Toxicity to various agents [None]
  - Coma hepatic [None]
  - Ascites [None]

NARRATIVE: CASE EVENT DATE: 20150509
